FAERS Safety Report 10939935 (Version 2)
Quarter: 2015Q2

REPORT INFORMATION
  Report Type: Spontaneous
  Country: US (occurrence: US)
  Receive Date: 20150322
  Receipt Date: 20150526
  Transmission Date: 20150821
  Serious: No
  Sender: FDA-Public Use
  Company Number: US-JNJFOC-20140618737

PATIENT
  Age: 5 Decade
  Sex: Female

DRUGS (2)
  1. RISPERDAL [Suspect]
     Active Substance: RISPERIDONE
     Indication: BIPOLAR DISORDER
     Route: 048
     Dates: end: 201405
  2. DEPAKOTE [Concomitant]
     Active Substance: DIVALPROEX SODIUM
     Indication: BIPOLAR DISORDER
     Route: 048

REACTIONS (2)
  - Amenorrhoea [Recovered/Resolved]
  - Blood prolactin increased [Unknown]

NARRATIVE: CASE EVENT DATE: 2014
